FAERS Safety Report 5253976-7 (Version None)
Quarter: 2007Q1

REPORT INFORMATION
  Report Type: 
  Country: None (occurrence: None)
  Receive Date: 20070302
  Receipt Date: 20070223
  Transmission Date: 20070707
  Serious: Yes (Life-Threatening, Hospitalization)
  Sender: FDA-Public Use
  Company Number: NO-JNJFOC-20061200832

PATIENT
  Sex: Female
  Weight: 100 kg

DRUGS (12)
  1. REMICADE [Suspect]
     Indication: PSORIATIC ARTHROPATHY
     Route: 042
  2. SELO-ZOK [Concomitant]
     Route: 048
  3. RENITEC [Concomitant]
     Route: 048
  4. ATACAND [Concomitant]
     Route: 048
  5. MINIRIN [Concomitant]
     Route: 048
  6. DETRUSITOL [Concomitant]
     Route: 065
  7. MOBIC [Concomitant]
     Route: 065
  8. NOBLIGAN [Concomitant]
     Route: 065
  9. OVESTERIN [Concomitant]
     Route: 065
  10. HIPREX [Concomitant]
     Route: 065
  11. NEXIUM [Concomitant]
     Route: 065
  12. FLUTIDE NASAL [Concomitant]
     Route: 065

REACTIONS (1)
  - CLEAR CELL CARCINOMA OF THE KIDNEY [None]
